FAERS Safety Report 15746100 (Version 5)
Quarter: 2019Q4

REPORT INFORMATION
  Report Type: Report from Study
  Country: US (occurrence: US)
  Receive Date: 20181220
  Receipt Date: 20191210
  Transmission Date: 20200122
  Serious: Yes (Hospitalization, Other)
  Sender: FDA-Public Use
  Company Number: US-ACTELION-A-US2017-164172

PATIENT
  Age: 66 Year
  Sex: Female

DRUGS (31)
  1. ALBUTEROL. [Concomitant]
     Active Substance: ALBUTEROL
  2. ARMOUR THYROID [Concomitant]
     Active Substance: THYROID, PORCINE
  3. BENTYL [Concomitant]
     Active Substance: DICYCLOMINE HYDROCHLORIDE
  4. BIOTIN [Concomitant]
     Active Substance: BIOTIN
  5. HYDROCHLOROTHIAZID [Concomitant]
     Active Substance: HYDROCHLOROTHIAZIDE
  6. HYDROCORTISONE. [Concomitant]
     Active Substance: HYDROCORTISONE
  7. MUPIROCIN. [Concomitant]
     Active Substance: MUPIROCIN
  8. LEVALBUTEROL. [Concomitant]
     Active Substance: LEVALBUTEROL
  9. MONTELUKAST [Concomitant]
     Active Substance: MONTELUKAST SODIUM
  10. TRACLEER [Suspect]
     Active Substance: BOSENTAN
     Dosage: 62.5 MG, BID
     Route: 048
     Dates: start: 20150904
  11. CURCUMIN [Concomitant]
     Active Substance: CURCUMIN
  12. CLEOCIN [Concomitant]
     Active Substance: CLINDAMYCIN PHOSPHATE
  13. MELOXICAM. [Concomitant]
     Active Substance: MELOXICAM
  14. PANTOPRAZOLE [Concomitant]
     Active Substance: PANTOPRAZOLE
  15. POTASSIUM CHLORIDE. [Concomitant]
     Active Substance: POTASSIUM CHLORIDE
  16. PROGESTERONE. [Concomitant]
     Active Substance: PROGESTERONE
  17. IRBESARTAN. [Concomitant]
     Active Substance: IRBESARTAN
  18. BUPROPION HCL [Concomitant]
     Active Substance: BUPROPION HYDROCHLORIDE
  19. ADVAIR HFA [Concomitant]
     Active Substance: FLUTICASONE PROPIONATE\SALMETEROL XINAFOATE
  20. MELATONIN [Concomitant]
     Active Substance: MELATONIN
  21. PROAIR HFA [Concomitant]
     Active Substance: ALBUTEROL SULFATE
  22. TRACLEER [Suspect]
     Active Substance: BOSENTAN
     Indication: PULMONARY ARTERIAL HYPERTENSION
     Dosage: 125 MG, BID
     Route: 048
     Dates: start: 20160127
  23. AMLODIPINE [Concomitant]
     Active Substance: AMLODIPINE BESYLATE
  24. VITAMIN B12 [Concomitant]
     Active Substance: CYANOCOBALAMIN
  25. DICYCLOMINE [Concomitant]
     Active Substance: DICYCLOMINE HYDROCHLORIDE
  26. GABAPENTIN AAA [Concomitant]
  27. METRONIDAZOL [Concomitant]
     Active Substance: METRONIDAZOLE
  28. MILK THISTLE PLUS [Concomitant]
     Active Substance: DIETARY SUPPLEMENT\HERBALS\MILK THISTLE
  29. MOMETASONE [Concomitant]
     Active Substance: MOMETASONE
  30. TESTOSTERONE. [Concomitant]
     Active Substance: TESTOSTERONE
  31. TRAMADOL. [Concomitant]
     Active Substance: TRAMADOL

REACTIONS (4)
  - Spinal operation [Unknown]
  - Neck surgery [Unknown]
  - Orthopaedic procedure [Unknown]
  - Urinary tract infection [Recovered/Resolved]

NARRATIVE: CASE EVENT DATE: 20171125
